FAERS Safety Report 24429660 (Version 2)
Quarter: 2024Q4

REPORT INFORMATION
  Report Type: Spontaneous
  Country: NL (occurrence: NL)
  Receive Date: 20241012
  Receipt Date: 20241026
  Transmission Date: 20250114
  Serious: Yes (Death)
  Sender: TEVA
  Company Number: NL-TEVA-VS-3252439

PATIENT
  Age: 36 Year
  Sex: Male

DRUGS (7)
  1. CISPLATIN [Suspect]
     Active Substance: CISPLATIN
     Indication: Burkitt^s lymphoma stage IV
     Route: 065
  2. GEMCITABINE [Suspect]
     Active Substance: GEMCITABINE
     Indication: Burkitt^s lymphoma stage IV
     Route: 065
  3. RITUXIMAB [Suspect]
     Active Substance: RITUXIMAB
     Indication: Burkitt^s lymphoma stage IV
     Route: 065
  4. INOTUZUMAB OZOGAMICIN [Suspect]
     Active Substance: INOTUZUMAB OZOGAMICIN
     Indication: Burkitt^s lymphoma stage IV
     Dosage: 2 COURSES
     Route: 065
  5. CYTARABINE [Suspect]
     Active Substance: CYTARABINE
     Indication: Burkitt^s lymphoma stage IV
     Route: 065
  6. DEXAMETHASONE [Suspect]
     Active Substance: DEXAMETHASONE
     Indication: Burkitt^s lymphoma stage IV
     Route: 065
  7. IDELALISIB [Suspect]
     Active Substance: IDELALISIB
     Indication: Burkitt^s lymphoma stage IV
     Route: 065

REACTIONS (1)
  - Drug ineffective [Fatal]
